FAERS Safety Report 7241780-X (Version None)
Quarter: 2011Q1

REPORT INFORMATION
  Report Type: 
  Country: None (occurrence: None)
  Receive Date: 20110124
  Receipt Date: 20110120
  Transmission Date: 20110831
  Serious: Yes (Hospitalization, Other)
  Sender: FDA-Public Use
  Company Number: JP-SANOFI-AVENTIS-2010SA076971

PATIENT
  Age: 79 Year
  Sex: Male
  Weight: 68 kg

DRUGS (6)
  1. PREDONINE [Concomitant]
     Route: 048
     Dates: start: 20100402
  2. NU-LOTAN [Concomitant]
     Route: 048
  3. TAXOTERE [Suspect]
     Indication: PROSTATE CANCER RECURRENT
     Route: 041
     Dates: start: 20100402, end: 20100402
  4. TAXOTERE [Suspect]
     Route: 041
     Dates: start: 20100810, end: 20100810
  5. ASPIRIN [Concomitant]
     Route: 048
  6. TAXOTERE [Suspect]
     Route: 041
     Dates: start: 20100511, end: 20100511

REACTIONS (3)
  - HYPOAESTHESIA [None]
  - GAIT DISTURBANCE [None]
  - MONOPLEGIA [None]
